FAERS Safety Report 6568745-5 (Version None)
Quarter: 2010Q1

REPORT INFORMATION
  Report Type: 
  Country: None (occurrence: None)
  Receive Date: 20100203
  Receipt Date: 20100127
  Transmission Date: 20100710
  Serious: Yes (Hospitalization)
  Sender: FDA-Public Use
  Company Number: GXKR2010IR01251

PATIENT
  Age: 49 Year
  Sex: Male

DRUGS (9)
  1. CYCLOSPORINE [Suspect]
     Dosage: 300 MG/DAY
     Route: 065
  2. CYCLOSPORINE [Suspect]
     Dosage: 250 MG/DAY
     Route: 065
  3. MYCOPHENOLATE MOFETIL (NGX) [Suspect]
     Dosage: 2 G/DAY
     Route: 065
  4. PREDNISOLONE [Suspect]
     Dosage: 30 MG/DAY
     Route: 065
  5. PREDNISOLONE [Suspect]
     Dosage: DECREASED TO 10 MG/DAY IN 6 MONTHS
     Route: 065
  6. PREDNISOLONE [Suspect]
     Dosage: 5 MG/DAY AT 1 YEAR
     Route: 065
  7. ACYCLOVIR [Concomitant]
     Indication: HERPES ZOSTER
     Route: 042
  8. GANCICLOVIR [Concomitant]
     Indication: CYTOMEGALOVIRUS INFECTION
     Route: 042
  9. METHYLPREDNISOLONE [Concomitant]
     Indication: TRANSPLANT REJECTION

REACTIONS (3)
  - BENIGN TUMOUR EXCISION [None]
  - OSTEOMA [None]
  - PAIN IN EXTREMITY [None]
